FAERS Safety Report 7432784-2 (Version None)
Quarter: 2011Q2

REPORT INFORMATION
  Report Type: 
  Country: None (occurrence: None)
  Receive Date: 20110422
  Receipt Date: 20110413
  Transmission Date: 20111010
  Serious: Yes (Hospitalization)
  Sender: FDA-Public Use
  Company Number: B0714298A

PATIENT
  Sex: Female

DRUGS (7)
  1. LASIX [Concomitant]
  2. KANRENOL [Concomitant]
  3. EUTIROX [Concomitant]
  4. NORVASC [Concomitant]
  5. ASPIRIN [Concomitant]
  6. LANOXIN [Suspect]
     Indication: CARDIAC FAILURE CHRONIC
     Route: 048
     Dates: start: 20050407
  7. OMEPRAZOLE [Concomitant]

REACTIONS (4)
  - DYSPEPSIA [None]
  - TOXICITY TO VARIOUS AGENTS [None]
  - ASTHENIA [None]
  - ABDOMINAL PAIN UPPER [None]
